FAERS Safety Report 9693884 (Version 1)
Quarter: 2013Q4

REPORT INFORMATION
  Report Type: Report from Study
  Country: US (occurrence: US)
  Receive Date: 20131118
  Receipt Date: 20131118
  Transmission Date: 20140711
  Serious: Yes (Hospitalization)
  Sender: FDA-Public Use
  Company Number: US-ROCHE-1305425

PATIENT
  Age: 87 Year
  Sex: Female

DRUGS (5)
  1. LUCENTIS [Suspect]
     Indication: MACULAR DEGENERATION
     Route: 065
     Dates: start: 201308
  2. VERAPAMIL [Concomitant]
  3. LEVOTHYROXINE [Concomitant]
  4. WELCHOL [Concomitant]
  5. CILOSTAZOL [Concomitant]

REACTIONS (3)
  - Pneumonia [Recovering/Resolving]
  - Cough [Unknown]
  - Drug dose omission [Unknown]
